FAERS Safety Report 23462745 (Version 1)
Quarter: 2024Q1

REPORT INFORMATION
  Report Type: Spontaneous
  Country: CA (occurrence: CA)
  Receive Date: 20240131
  Receipt Date: 20240131
  Transmission Date: 20240410
  Serious: Yes (Hospitalization, Other)
  Sender: FDA-Public Use
  Company Number: CA-BAYER-2024A017188

PATIENT
  Age: 75 Year
  Sex: Male

DRUGS (2)
  1. NUBEQA [Suspect]
     Active Substance: DAROLUTAMIDE
     Indication: Chemotherapy
     Dosage: UNK
  2. TRELSTAR [Suspect]
     Active Substance: TRIPTORELIN PAMOATE
     Indication: Prostate cancer
     Dosage: 11.25MG 1 EVERY 3 MONTHS PER DAY
     Route: 030

REACTIONS (6)
  - Pneumonia [Not Recovered/Not Resolved]
  - Pulmonary oedema [None]
  - Asthenia [None]
  - Dyspnoea [None]
  - Heart rate increased [None]
  - Gait disturbance [None]
